FAERS Safety Report 4559518-3 (Version None)
Quarter: 2005Q1

REPORT INFORMATION
  Report Type: 
  Country: None (occurrence: None)
  Receive Date: 20050119
  Receipt Date: 20050112
  Transmission Date: 20050727
  Serious: Yes (Death)
  Sender: FDA-Public Use
  Company Number: 430001M05FRA

PATIENT
  Age: 68 Year
  Sex: Female

DRUGS (5)
  1. NOVANTRONE [Suspect]
     Indication: BREAST CANCER
     Dosage: 22 MG  1 IN 1 CYCLE , INTRAVENOUS
     Route: 042
     Dates: start: 19960101, end: 19960101
  2. CYCLOPHOSPHAMIDE [Suspect]
     Indication: BREAST CANCER
     Dosage: 950 MG, 1 IN 1 CYCLE , INTRAVENOUS
     Route: 042
     Dates: start: 19960101, end: 19960101
  3. IDARUBICIN HCL [Suspect]
     Indication: ACUTE MYELOID LEUKAEMIA
     Dates: start: 20030904, end: 20030904
  4. CYTARABINE [Suspect]
     Indication: ACUTE MYELOID LEUKAEMIA
     Dates: start: 20030904, end: 20030904
  5. FLUOROURACIL [Concomitant]

REACTIONS (3)
  - ACUTE MYELOID LEUKAEMIA RECURRENT [None]
  - ACUTE RESPIRATORY DISTRESS SYNDROME [None]
  - UPPER RESPIRATORY TRACT INFECTION BACTERIAL [None]
